FAERS Safety Report 15570710 (Version 1)
Quarter: 2018Q4

REPORT INFORMATION
  Report Type: Spontaneous
  Country: US (occurrence: US)
  Receive Date: 20181031
  Receipt Date: 20181031
  Transmission Date: 20190205
  Serious: No
  Sender: FDA-Public Use
  Company Number: US-MIST-TIR-2018-0190

PATIENT
  Age: 55 Year
  Sex: Female
  Weight: 64.92 kg

DRUGS (4)
  1. TIROSINT [Suspect]
     Active Substance: LEVOTHYROXINE SODIUM
     Dosage: 13MCG DAILY
     Route: 048
     Dates: start: 201804, end: 201805
  2. TIROSINT [Suspect]
     Active Substance: LEVOTHYROXINE SODIUM
     Indication: AUTOIMMUNE THYROIDITIS
     Dosage: 13MCG DAILY
     Route: 048
     Dates: start: 201709, end: 20180216
  3. TIROSINT [Suspect]
     Active Substance: LEVOTHYROXINE SODIUM
     Dosage: 13MCG DAILY
     Route: 048
     Dates: start: 20180217, end: 20180222
  4. TIROSINT [Suspect]
     Active Substance: LEVOTHYROXINE SODIUM
     Dosage: 13MCG DAILY
     Route: 048
     Dates: start: 201806, end: 201807

REACTIONS (12)
  - Blood pressure increased [Unknown]
  - Insomnia [Recovered/Resolved]
  - Dizziness [Recovered/Resolved]
  - Nervousness [Not Recovered/Not Resolved]
  - Blood thyroid stimulating hormone increased [Unknown]
  - Psychomotor hyperactivity [Recovered/Resolved]
  - Muscle spasms [Recovered/Resolved]
  - Insomnia [Recovered/Resolved]
  - Feeling abnormal [Unknown]
  - Irritability [Recovered/Resolved]
  - Fatigue [Recovered/Resolved]
  - Agitation [Recovered/Resolved]

NARRATIVE: CASE EVENT DATE: 20180218
